FAERS Safety Report 10905036 (Version 1)
Quarter: 2015Q1

REPORT INFORMATION
  Report Type: Spontaneous
  Country: US (occurrence: None)
  Receive Date: 20150107
  Receipt Date: 20150107
  Transmission Date: 20150721
  Serious: No
  Sender: FDA-Public Use
  Company Number: 2014TUS013105

PATIENT
  Age: 62 Year
  Sex: Female
  Weight: 106.1 kg

DRUGS (6)
  1. MULTIVITAMINS (ASCORBIC ACID, ERGOCALCIFEROL, FOLIC ACID, NICOTINAMIDE, PANTHENOL, RETINOL, RIBOFLAVIN, THIAMINE HYDROCHLORIDE) [Concomitant]
     Active Substance: VITAMINS
  2. PLAVIX (CLOPIDOGREL BISULFATE) [Concomitant]
  3. BUPROPION SR (BUPROPION) [Concomitant]
  4. METOPROLOL ER (METOPROLOL TARTRATE) [Concomitant]
  5. CRESTOR [Concomitant]
     Active Substance: ROSUVASTATIN CALCIUM
  6. CONTRAVE [Suspect]
     Active Substance: BUPROPION HYDROCHLORIDE\NALTREXONE HYDROCHLORIDE
     Indication: OBESITY
     Dosage: 1 TABLET, QAM, ORAL
     Route: 048
     Dates: start: 20141121, end: 201411

REACTIONS (5)
  - Hyperhidrosis [None]
  - Retching [None]
  - Dizziness [None]
  - Fatigue [None]
  - Nausea [None]

NARRATIVE: CASE EVENT DATE: 20141121
